FAERS Safety Report 6465852-2 (Version None)
Quarter: 2009Q4

REPORT INFORMATION
  Report Type: 
  Country: None (occurrence: None)
  Receive Date: 20091127
  Receipt Date: 20091117
  Transmission Date: 20100525
  Serious: Yes (Other)
  Sender: FDA-Public Use
  Company Number: 430053M09USA

PATIENT
  Age: 68 Year
  Sex: Female

DRUGS (2)
  1. NOVANTRONE [Suspect]
     Dates: start: 20020101
  2. AVONEX [Concomitant]

REACTIONS (6)
  - DISEASE PROGRESSION [None]
  - EJECTION FRACTION DECREASED [None]
  - MULTIPLE SCLEROSIS [None]
  - SEPSIS [None]
  - SPINAL COLUMN STENOSIS [None]
  - SPINAL COMPRESSION FRACTURE [None]
